FAERS Safety Report 13531484 (Version 4)
Quarter: 2019Q3

REPORT INFORMATION
  Report Type: Report from Study
  Country: CA (occurrence: CA)
  Receive Date: 20170510
  Receipt Date: 20190722
  Transmission Date: 20191004
  Serious: Yes (Other)
  Sender: FDA-Public Use
  Company Number: CA-TAKEDA-2017TUS003834

PATIENT
  Age: 82 Year
  Sex: Female

DRUGS (18)
  1. CRESTOR [Concomitant]
     Active Substance: ROSUVASTATIN CALCIUM
     Dosage: 10 MG, QD
  2. PREDNISONE. [Concomitant]
     Active Substance: PREDNISONE
     Dosage: UNK
  3. PARIET [Concomitant]
     Active Substance: RABEPRAZOLE SODIUM
     Dosage: 20 MG, BID
  4. VEDOLIZUMAB [Suspect]
     Active Substance: VEDOLIZUMAB
     Indication: COLITIS ULCERATIVE
     Dosage: 300 MILLIGRAM
     Route: 042
     Dates: start: 20170202
  5. VEDOLIZUMAB [Suspect]
     Active Substance: VEDOLIZUMAB
     Dosage: 300 MILLIGRAM
     Route: 042
  6. ASPIRIN                            /00002701/ [Concomitant]
     Active Substance: ASPIRIN
     Dosage: UNK
  7. METOLAZONE. [Concomitant]
     Active Substance: METOLAZONE
     Dosage: UNK
  8. COZAAR [Concomitant]
     Active Substance: LOSARTAN POTASSIUM
     Dosage: UNK
  9. BISOPROLOL [Concomitant]
     Active Substance: BISOPROLOL
     Dosage: 2.5 MG, QD
  10. SPIROTONE [Concomitant]
     Dosage: UNK
  11. ONBREZ [Concomitant]
     Active Substance: INDACATEROL
     Dosage: 75 UG, UNK
  12. DILTIAZEM. [Concomitant]
     Active Substance: DILTIAZEM
     Dosage: 249 MG, QD
  13. INDACATEROL [Concomitant]
     Active Substance: INDACATEROL
     Dosage: UNK UNK, QD
  14. APIXABAN [Concomitant]
     Active Substance: APIXABAN
     Dosage: 2.5 MG, BID
  15. DETROL [Concomitant]
     Active Substance: TOLTERODINE TARTRATE
     Dosage: 2 MG, BID
  16. MICRO-K [Concomitant]
     Active Substance: POTASSIUM CHLORIDE
     Dosage: 8 MEQ, QD
  17. VEDOLIZUMAB [Suspect]
     Active Substance: VEDOLIZUMAB
     Dosage: 300 MILLIGRAM
     Route: 042
     Dates: start: 20170202
  18. LASIX [Concomitant]
     Active Substance: FUROSEMIDE
     Dosage: UNK

REACTIONS (8)
  - Faecal calprotectin increased [Unknown]
  - Adenocarcinoma [Unknown]
  - Heart valve incompetence [Unknown]
  - Pulmonary oedema [Unknown]
  - Renal impairment [Unknown]
  - Peripheral swelling [Unknown]
  - Cardiac disorder [Unknown]
  - Colitis ulcerative [Unknown]

NARRATIVE: CASE EVENT DATE: 20190204
